FAERS Safety Report 7539373 (Version 4)
Quarter: 2013Q3

REPORT INFORMATION
  Report Type: Report from Study
  Country: US (occurrence: US)
  Receive Date: 20100813
  Receipt Date: 20130806
  Transmission Date: 20140515
  Serious: Yes (Hospitalization)
  Sender: FDA-Public Use
  Company Number: US-BIOGENIDEC-2010BI010973

PATIENT
  Age: 37 Year
  Sex: Female

DRUGS (5)
  1. TYSABRI [Suspect]
     Indication: MULTIPLE SCLEROSIS
     Route: 042
     Dates: start: 20071217, end: 20091204
  2. TYSABRI [Suspect]
     Indication: MULTIPLE SCLEROSIS
     Route: 042
     Dates: start: 20100811
  3. PRENATAL VITAMINS [Concomitant]
  4. LOVENOX [Concomitant]
  5. 17 P INJECTIONS [Concomitant]

REACTIONS (2)
  - Premature separation of placenta [Recovered/Resolved]
  - Pregnancy [Recovered/Resolved]
